FAERS Safety Report 17550605 (Version 1)
Quarter: 2020Q1

REPORT INFORMATION
  Report Type: Spontaneous
  Country: IT (occurrence: IT)
  Receive Date: 20200317
  Receipt Date: 20200317
  Transmission Date: 20200409
  Serious: Yes (Hospitalization, Other)
  Sender: FDA-Public Use
  Company Number: IT-PFIZER INC-2020113537

PATIENT
  Age: 38 Year
  Sex: Male

DRUGS (30)
  1. SPIRULINA MAXIMA [Concomitant]
     Indication: NUTRITIONAL SUPPLEMENTATION
     Dosage: UNK
  2. BISOPROLOL [Concomitant]
     Active Substance: BISOPROLOL
     Indication: GLOMERULONEPHRITIS
     Dosage: 5 MG, DAILY
  3. CURCUMA LONGA [Concomitant]
     Active Substance: HERBALS\TURMERIC
     Indication: NUTRITIONAL SUPPLEMENTATION
     Dosage: UNK
  4. TAURINE [Concomitant]
     Active Substance: TAURINE
     Indication: NUTRITIONAL SUPPLEMENTATION
     Dosage: UNK
  5. CYNODON DACTYLON [Concomitant]
     Indication: NUTRITIONAL SUPPLEMENTATION
     Dosage: UNK
  6. MAGNESIUM [Concomitant]
     Active Substance: MAGNESIUM
     Indication: NUTRITIONAL SUPPLEMENTATION
     Dosage: UNK
  7. SELENIUM [Concomitant]
     Active Substance: SELENIUM
     Indication: NUTRITIONAL SUPPLEMENTATION
     Dosage: UNK
  8. BISOPROLOL [Concomitant]
     Active Substance: BISOPROLOL
     Indication: HYPERTENSION
  9. DOXAZOSIN [Concomitant]
     Active Substance: DOXAZOSIN MESYLATE
     Indication: HYPERTENSION
  10. MARRUBIUM VULGARE [Concomitant]
     Indication: NUTRITIONAL SUPPLEMENTATION
     Dosage: UNK
  11. SOJA [Concomitant]
     Indication: NUTRITIONAL SUPPLEMENTATION
     Dosage: UNK
  12. RAMIPRIL. [Concomitant]
     Active Substance: RAMIPRIL
     Indication: HYPERTENSION
  13. GLUCOSAMINE [Concomitant]
     Active Substance: GLUCOSAMINE
     Indication: NUTRITIONAL SUPPLEMENTATION
     Dosage: UNK
  14. LORAZEPAM. [Suspect]
     Active Substance: LORAZEPAM
     Indication: CATATONIA
     Dosage: 15 MG, DAILY
  15. DOXAZOSIN [Concomitant]
     Active Substance: DOXAZOSIN MESYLATE
     Indication: GLOMERULONEPHRITIS
     Dosage: 8 MG, DAILY
  16. ALLIUM SATIVUM [Concomitant]
     Indication: NUTRITIONAL SUPPLEMENTATION
     Dosage: UNK
  17. LEONURUS CARDIACA [Concomitant]
     Indication: NUTRITIONAL SUPPLEMENTATION
     Dosage: UNK
  18. FUMARIA OFFICINALIS [Concomitant]
     Indication: NUTRITIONAL SUPPLEMENTATION
     Dosage: UNK
  19. BETULA ALBA [Concomitant]
     Indication: NUTRITIONAL SUPPLEMENTATION
     Dosage: UNK
  20. BERBERIS VULGARIS [Concomitant]
     Active Substance: HERBALS
     Indication: NUTRITIONAL SUPPLEMENTATION
     Dosage: UNK
  21. LORAZEPAM. [Suspect]
     Active Substance: LORAZEPAM
     Indication: PSYCHOMOTOR RETARDATION
  22. AMLODIPIN [AMLODIPINE BESILATE] [Concomitant]
     Active Substance: AMLODIPINE BESYLATE
     Indication: GLOMERULONEPHRITIS
     Dosage: 5 MG, DAILY
  23. PASSIFLORA [PASSIFLORA INCARNATA] [Concomitant]
     Indication: NUTRITIONAL SUPPLEMENTATION
     Dosage: UNK
  24. GLUTATHIONE [Concomitant]
     Active Substance: GLUTATHIONE
     Indication: NUTRITIONAL SUPPLEMENTATION
     Dosage: UNK
  25. TARAXACUM OFFICINALE [Concomitant]
     Active Substance: HERBALS\TARAXACUM OFFICINALE
     Indication: NUTRITIONAL SUPPLEMENTATION
     Dosage: UNK
  26. RAMIPRIL. [Concomitant]
     Active Substance: RAMIPRIL
     Indication: GLOMERULONEPHRITIS
     Dosage: 10 MG, DAILY
  27. AMLODIPIN [AMLODIPINE BESILATE] [Concomitant]
     Active Substance: AMLODIPINE BESYLATE
     Indication: HYPERTENSION
  28. RUSCUS ACULEATUS [Concomitant]
     Active Substance: RUSCUS ACULEATUS ROOT
     Indication: NUTRITIONAL SUPPLEMENTATION
     Dosage: UNK
  29. DIOSCOREA OPPOSITA [Concomitant]
     Indication: NUTRITIONAL SUPPLEMENTATION
     Dosage: UNK
  30. ZINC. [Concomitant]
     Active Substance: ZINC
     Indication: NUTRITIONAL SUPPLEMENTATION
     Dosage: UNK

REACTIONS (3)
  - Electroencephalogram abnormal [Unknown]
  - Off label use [Unknown]
  - Somnolence [Unknown]
